FAERS Safety Report 7460103-4 (Version None)
Quarter: 2011Q2

REPORT INFORMATION
  Report Type: 
  Country: None (occurrence: None)
  Receive Date: 20110505
  Receipt Date: 20110422
  Transmission Date: 20111010
  Serious: Yes (Other)
  Sender: FDA-Public Use
  Company Number: PHHY2011US34676

PATIENT
  Sex: Male
  Weight: 73.469 kg

DRUGS (8)
  1. FISH OIL [Concomitant]
  2. PROTONIX [Concomitant]
     Dosage: 20 MG, UNK
  3. GLEEVEC [Suspect]
     Dosage: 3 DF, DAILY
     Route: 048
     Dates: start: 20050101
  4. XOPENEX HFA [Concomitant]
  5. MULTI-VITAMINS [Concomitant]
     Dosage: 81 MG, EC
  6. ACYCLOVIR [Concomitant]
     Dosage: 200 MG, UNK
  7. SYMBICORT [Concomitant]
     Dosage: 80-4.5
  8. GLEEVEC [Suspect]
     Dosage: 400 MG, UNK

REACTIONS (5)
  - RESPIRATORY DISORDER [None]
  - DRY EYE [None]
  - DRY MOUTH [None]
  - ASTHMA [None]
  - DISCOMFORT [None]
